FAERS Safety Report 16262472 (Version 1)
Quarter: 2019Q2

REPORT INFORMATION
  Report Type: Spontaneous
  Country: US (occurrence: US)
  Receive Date: 20190501
  Receipt Date: 20190501
  Transmission Date: 20190711
  Serious: Yes (Other)
  Sender: FDA-Public Use
  Company Number: US-AMPHASTAR PHARMACEUTICALS, INC.-2066515

PATIENT
  Age: 47 Year
  Sex: Male
  Weight: 102.27 kg

DRUGS (1)
  1. ENOXAPARIN SODIUM. [Suspect]
     Active Substance: ENOXAPARIN SODIUM
     Indication: FACTOR V LEIDEN MUTATION
     Dates: start: 201805

REACTIONS (4)
  - Removal of foreign body [Recovering/Resolving]
  - Foreign body [Recovered/Resolved]
  - Drug ineffective [Unknown]
  - Injection site nodule [Unknown]

NARRATIVE: CASE EVENT DATE: 20190402
